FAERS Safety Report 5429823-7 (Version None)
Quarter: 2007Q3

REPORT INFORMATION
  Report Type: 
  Country: None (occurrence: None)
  Receive Date: 20070731
  Receipt Date: 20070412
  Transmission Date: 20080115
  Serious: No
  Sender: FDA-Public Use
  Company Number: US200704002798

PATIENT
  Age: 67 Year
  Sex: Female
  Weight: 110.2 kg

DRUGS (4)
  1. BYETTA [Suspect]
     Indication: TYPE 2 DIABETES MELLITUS
     Dosage: 5 UG, 2/D, SUBCUTANEOUS; 10 UG, 2/D, SUBCUTANEOUS
     Route: 058
     Dates: start: 20050424, end: 20060501
  2. BYETTA [Suspect]
     Indication: TYPE 2 DIABETES MELLITUS
     Dosage: 5 UG, 2/D, SUBCUTANEOUS; 10 UG, 2/D, SUBCUTANEOUS
     Route: 058
     Dates: start: 20060501
  3. EXENATIDE PEN, DISPOSABLE DEVICE (EXENATIDE PEN) [Concomitant]
  4. FORTAMET (METFORMIN HYDROCHLORIDE) [Concomitant]

REACTIONS (9)
  - ARTHRALGIA [None]
  - BALANCE DISORDER [None]
  - FALL [None]
  - FEELING COLD [None]
  - JOINT INJURY [None]
  - JOINT SWELLING [None]
  - WEIGHT DECREASED [None]
  - WEIGHT INCREASED [None]
  - WRIST FRACTURE [None]
